FAERS Safety Report 8364998-1 (Version None)
Quarter: 2012Q2

REPORT INFORMATION
  Report Type: 
  Country: None (occurrence: None)
  Receive Date: 20120516
  Receipt Date: 20120511
  Transmission Date: 20120825
  Serious: Yes (Other)
  Sender: FDA-Public Use
  Company Number: US-GLAXOSMITHKLINE-A0977336A

PATIENT
  Age: 65 Year
  Sex: Female

DRUGS (7)
  1. LISINOPRIL AND HYDROCHLOROTHIAZIDE [Concomitant]
  2. ASPIRIN [Concomitant]
  3. ACTOS [Concomitant]
  4. PAROXETINE [Concomitant]
  5. ADVAIR DISKUS 100/50 [Suspect]
     Dosage: 1PUFF TWICE PER DAY
     Route: 055
     Dates: end: 20120422
  6. ADVAIR DISKUS 100/50 [Suspect]
     Indication: ASTHMA
     Dosage: 1PUFF TWICE PER DAY
     Route: 055
     Dates: start: 20120422, end: 20120427
  7. METFORMIN HCL [Concomitant]

REACTIONS (5)
  - SKIN STRIAE [None]
  - WOUND HAEMORRHAGE [None]
  - DYSPNOEA [None]
  - RASH ERYTHEMATOUS [None]
  - ANIMAL SCRATCH [None]
